FAERS Safety Report 6955792-4 (Version None)
Quarter: 2010Q3

REPORT INFORMATION
  Report Type: 
  Country: None (occurrence: None)
  Receive Date: 20100830
  Receipt Date: 20100816
  Transmission Date: 20110219
  Serious: Yes (Death, Other)
  Sender: FDA-Public Use
  Company Number: KR-ROCHE-721513

PATIENT

DRUGS (3)
  1. TRETINOIN [Suspect]
     Route: 048
  2. IDARUBICIN HCL [Suspect]
     Dosage: ON DAY 1 TO DAY 3
     Route: 065
  3. ARA-C [Suspect]
     Dosage: FRON DAY 1 TO DAY 7
     Route: 065

REACTIONS (4)
  - ACUTE PROMYELOCYTIC LEUKAEMIA [None]
  - INFECTION [None]
  - PROCEDURAL COMPLICATION [None]
  - PYREXIA [None]
